FAERS Safety Report 5153665-3 (Version None)
Quarter: 2006Q4

REPORT INFORMATION
  Report Type: 
  Country: None (occurrence: None)
  Receive Date: 20061114
  Receipt Date: 20061102
  Transmission Date: 20070319
  Serious: Yes (Life-Threatening, Hospitalization)
  Sender: FDA-Public Use
  Company Number: 2006AL003380

PATIENT
  Age: 43 Year
  Sex: Male

DRUGS (7)
  1. FLUOXETINE [Suspect]
     Dosage: 560 MG; X1
  2. AMLODIPINE [Concomitant]
  3. ASPIRIN [Concomitant]
  4. CITALOPRAM HYDROBROMIDE [Concomitant]
  5. FOLIC ACID [Concomitant]
  6. ACETAMINOPHEN [Concomitant]
  7. PERINDOPRIL ERBUMINE [Concomitant]

REACTIONS (2)
  - HYPOTENSION [None]
  - MULTIPLE DRUG OVERDOSE [None]
